FAERS Safety Report 4631493-2 (Version None)
Quarter: 2005Q2

REPORT INFORMATION
  Report Type: 
  Country: None (occurrence: None)
  Receive Date: 20050407
  Receipt Date: 20050401
  Transmission Date: 20051028
  Serious: Yes (Hospitalization, Disabling)
  Sender: FDA-Public Use
  Company Number: 2005-124889-NL

PATIENT
  Age: 20 Year
  Sex: Male

DRUGS (1)
  1. MIRTAZAPINE [Suspect]
     Indication: DEPRESSION
     Dosage: 1 DF QD ORAL
     Route: 048
     Dates: start: 20041101, end: 20041201

REACTIONS (3)
  - ANGER [None]
  - NONSPECIFIC REACTION [None]
  - OBSESSIVE-COMPULSIVE DISORDER [None]
